FAERS Safety Report 12413609 (Version 1)
Quarter: 2016Q2

REPORT INFORMATION
  Report Type: Spontaneous
  Country: US (occurrence: US)
  Receive Date: 20160527
  Receipt Date: 20160527
  Transmission Date: 20160815
  Serious: Yes (Other)
  Sender: FDA-Public Use
  Company Number: US-009507513-1605USA012157

PATIENT
  Age: 50 Year
  Sex: Male
  Weight: 82.5 kg

DRUGS (14)
  1. PROBIOTICS (UNSPECIFIED) [Concomitant]
     Active Substance: PROBIOTICS NOS
     Dosage: 3 BILLION, TWO A DAY WITH FOOD
     Route: 048
     Dates: start: 2014
  2. NEURONTIN [Suspect]
     Active Substance: GABAPENTIN
     Dosage: 300 MG, QPM
  3. NEURONTIN [Suspect]
     Active Substance: GABAPENTIN
     Indication: NERVE INJURY
     Dosage: 300 MG, Q2M
     Route: 048
  4. NEURONTIN [Suspect]
     Active Substance: GABAPENTIN
     Dosage: 300 MG, HS
     Route: 048
  5. GASTROINTESTINAL PREPARATIONS (UNSPECIFIED) [Concomitant]
     Active Substance: UNSPECIFIED INGREDIENT
     Dosage: TWO 50 MG, AT NIGHT QPM
     Route: 048
  6. TRYPTANOL [Suspect]
     Active Substance: AMITRIPTYLINE
     Dosage: 100 MG, QD
     Route: 048
     Dates: start: 1986
  7. LEVOTHYROXINE SODIUM. [Suspect]
     Active Substance: LEVOTHYROXINE SODIUM
     Dosage: 100 MICROGRAM, QD
     Route: 048
  8. LORAZEPAM. [Concomitant]
     Active Substance: LORAZEPAM
     Indication: NERVOUSNESS
     Dosage: ONE 0.5 MG, IN THE MORNIGN QAM
     Route: 048
  9. GASTROINTESTINAL PREPARATIONS (UNSPECIFIED) [Concomitant]
     Active Substance: UNSPECIFIED INGREDIENT
     Dosage: TWO 50 MG, IN THE MORINGING QAM
     Route: 048
  10. LORAZEPAM. [Concomitant]
     Active Substance: LORAZEPAM
     Dosage: ONE 0.5 MG AT NOON QPM
     Route: 048
  11. ACETAMINOPHEN. [Suspect]
     Active Substance: ACETAMINOPHEN
     Dosage: 2 DF, UNK
     Route: 048
     Dates: start: 2012
  12. LORAZEPAM. [Concomitant]
     Active Substance: LORAZEPAM
     Dosage: TWO 0.5 MG, AT BED TIME HS
     Route: 048
  13. ZOCOR [Suspect]
     Active Substance: SIMVASTATIN
     Dosage: 40 MG, QD
     Route: 048
  14. GLIMEPIRIDE. [Concomitant]
     Active Substance: GLIMEPIRIDE
     Indication: RENAL DISORDER
     Dosage: 1MG THAT HE BREAKS IN HALF 1/2 TABLET DAILY
     Route: 048

REACTIONS (22)
  - Tuberculosis [Recovered/Resolved]
  - Diabetic neuropathy [Not Recovered/Not Resolved]
  - Infection [Unknown]
  - Fatigue [Not Recovered/Not Resolved]
  - Lymphadenopathy [Not Recovered/Not Resolved]
  - Pneumonia [Not Recovered/Not Resolved]
  - Muscle fatigue [Not Recovered/Not Resolved]
  - Speech disorder [Not Recovered/Not Resolved]
  - Diabetes mellitus [Not Recovered/Not Resolved]
  - Nephrectomy [Unknown]
  - Peripheral swelling [Not Recovered/Not Resolved]
  - Pyrexia [Not Recovered/Not Resolved]
  - Affective disorder [Recovered/Resolved]
  - Renal impairment [Unknown]
  - Depression [Not Recovered/Not Resolved]
  - Suicidal ideation [Recovered/Resolved]
  - Suicidal behaviour [Recovered/Resolved]
  - Pain [Unknown]
  - Burning sensation [Unknown]
  - Dizziness [Not Recovered/Not Resolved]
  - Pain in extremity [Not Recovered/Not Resolved]
  - Rash [Not Recovered/Not Resolved]

NARRATIVE: CASE EVENT DATE: 1989
